FAERS Safety Report 8861174 (Version 1)
Quarter: 2012Q4

REPORT INFORMATION
  Report Type: 
  Country: US (occurrence: US)
  Receive Date: 20121025
  Receipt Date: 20121025
  Transmission Date: 20130627
  Serious: No
  Sender: FDA-Public Use
  Company Number: US-AMGEN-USASP2012012622

PATIENT
  Sex: Female

DRUGS (7)
  1. ENBREL [Suspect]
     Indication: PRODUCT USED FOR UNKNOWN INDICATION
     Dosage: 50 mg, qwk
     Route: 058
  2. NAPROSYN /00256201/ [Concomitant]
     Dosage: 250 mg, UNK
  3. CENTRUM SILVER                     /01292501/ [Concomitant]
  4. FOSAMAX [Concomitant]
     Dosage: 5 mg, UNK
  5. METHOTREXATE [Concomitant]
     Dosage: 2.5 mg, UNK
  6. VITAMIN D /00107901/ [Concomitant]
     Dosage: 400 IU, UNK
  7. FOLIC ACID [Concomitant]

REACTIONS (1)
  - Injection site erythema [Unknown]
